FAERS Safety Report 8767698 (Version 2)
Quarter: 2013Q4

REPORT INFORMATION
  Report Type: Spontaneous
  Country: US (occurrence: US)
  Receive Date: 20120904
  Receipt Date: 20131101
  Transmission Date: 20140711
  Serious: No
  Sender: FDA-Public Use
  Company Number: US-009507513-1208USA010892

PATIENT
  Sex: Female

DRUGS (3)
  1. JANUVIA [Suspect]
     Dosage: UNK, SPLIT 100 MG TABLET INTO QUARTERS TO RECEIVED 25 MG QD
     Route: 048
     Dates: start: 201204
  2. JANUVIA [Suspect]
     Dosage: UNK
     Route: 048
     Dates: start: 2007, end: 2012
  3. GLIPIZIDE [Concomitant]

REACTIONS (3)
  - Blood glucose increased [Unknown]
  - Wrong technique in drug usage process [Unknown]
  - Underdose [Unknown]
